FAERS Safety Report 6385832-5 (Version None)
Quarter: 2009Q4

REPORT INFORMATION
  Report Type: 
  Country: None (occurrence: None)
  Receive Date: 20091002
  Receipt Date: 20090928
  Transmission Date: 20100525
  Serious: Yes (Death, Life-Threatening, Hospitalization, Other)
  Sender: FDA-Public Use
  Company Number: JP-BAYER-200910845BYL

PATIENT
  Age: 41 Year
  Sex: Male
  Weight: 68 kg

DRUGS (15)
  1. FLUDARA [Suspect]
     Indication: T-CELL LYMPHOMA STAGE IV
     Dosage: AS USED: 50 MG  UNIT DOSE: 50 MG
     Route: 041
     Dates: start: 20080521, end: 20080526
  2. BUSULFEX [Suspect]
     Indication: T-CELL LYMPHOMA STAGE IV
     Dosage: AS USED: 212 MG
     Route: 041
     Dates: start: 20080522, end: 20080523
  3. SANDIMMUNE [Suspect]
     Route: 041
     Dates: start: 20080526, end: 20080630
  4. SANDIMMUNE [Suspect]
     Route: 041
     Dates: start: 20080725, end: 20080806
  5. SANDIMMUNE [Suspect]
     Route: 041
     Dates: start: 20080809, end: 20080816
  6. DEPAKENE [Concomitant]
     Indication: CONVULSION PROPHYLAXIS
     Dosage: AS USED: 400 MG  UNIT DOSE: 200 MG
     Route: 048
     Dates: start: 20080521, end: 20080524
  7. CRAVIT [Concomitant]
     Dosage: UNIT DOSE: 100 MG
     Route: 048
     Dates: start: 20080625, end: 20080630
  8. CRAVIT [Concomitant]
     Dosage: UNIT DOSE: 100 MG
     Route: 048
     Dates: start: 20080716, end: 20080718
  9. KLARICID [Concomitant]
     Route: 048
     Dates: start: 20080521, end: 20080626
  10. POLYMYXIN-B-SULFATE [Concomitant]
     Route: 048
     Dates: start: 20080521, end: 20080626
  11. ZOVIRAX [Concomitant]
     Route: 048
     Dates: start: 20080521, end: 20080807
  12. DIFLUCAN [Concomitant]
     Route: 048
     Dates: start: 20080521, end: 20080701
  13. BAKTAR [Concomitant]
     Route: 048
     Dates: start: 20080627, end: 20080721
  14. CONCENTRATED RED CELLS [Concomitant]
     Indication: PACKED RED BLOOD CELL TRANSFUSION
     Route: 042
     Dates: start: 20080603, end: 20080822
  15. PLATELETS [Concomitant]
     Indication: PLATELET TRANSFUSION
     Route: 042
     Dates: start: 20080524, end: 20080823

REACTIONS (9)
  - ACUTE HEPATIC FAILURE [None]
  - CANDIDA SEPSIS [None]
  - CYTOMEGALOVIRUS INFECTION [None]
  - ENGRAFT FAILURE [None]
  - FEBRILE NEUTROPENIA [None]
  - MULTI-ORGAN FAILURE [None]
  - PNEUMONIA [None]
  - RENAL FAILURE ACUTE [None]
  - THROMBOTIC MICROANGIOPATHY [None]
